FAERS Safety Report 24352626 (Version 2)
Quarter: 2024Q4

REPORT INFORMATION
  Report Type: Report from Study
  Country: CA (occurrence: CA)
  Receive Date: 20240923
  Receipt Date: 20241002
  Transmission Date: 20250115
  Serious: Yes (Other)
  Sender: ALNYLAM PHARMACEUTICALS
  Company Number: CA-ALNYLAM PHARMACEUTICALS, INC.-ALN-2024-005129

PATIENT

DRUGS (2)
  1. OXLUMO [Suspect]
     Active Substance: LUMASIRAN
     Indication: Primary hyperoxaluria
     Dosage: 3 MILLIGRAM/KILOGRAM, MONTHLY (LOADING DOSE)
     Route: 058
     Dates: start: 20220519, end: 20220519
  2. VITAMIN B6 [Concomitant]
     Active Substance: PYRIDOXINE HYDROCHLORIDE
     Indication: Hyperoxaluria
     Dosage: UNK
     Route: 065

REACTIONS (9)
  - Nephrolithiasis [Unknown]
  - Acute kidney injury [Recovered/Resolved]
  - Ureterolithiasis [Recovered/Resolved]
  - Renal transplant [Recovered/Resolved]
  - Hyponatraemia [Unknown]
  - Nausea [Unknown]
  - Headache [Unknown]
  - Hypocitraturia [Not Recovered/Not Resolved]
  - Post procedural discomfort [Unknown]

NARRATIVE: CASE EVENT DATE: 20240101
